FAERS Safety Report 7631908-1 (Version None)
Quarter: 2011Q3

REPORT INFORMATION
  Report Type: 
  Country: None (occurrence: None)
  Receive Date: 20110725
  Receipt Date: 20110507
  Transmission Date: 20111222
  Serious: No
  Sender: FDA-Public Use
  Company Number: US-BRISTOL-MYERS SQUIBB COMPANY-15725138

PATIENT
  Age: 42 Year
  Sex: Female
  Weight: 103 kg

DRUGS (3)
  1. DEPO-PROVERA [Concomitant]
     Indication: CONTRACEPTION
     Dosage: DEPO-PROVARA SHOTS
  2. COUMADIN [Suspect]
     Dosage: PEACH COLORED TABS
     Route: 048
  3. BLOOD PRESSURE PILL [Concomitant]

REACTIONS (1)
  - VAGINAL HAEMORRHAGE [None]
